FAERS Safety Report 20666895 (Version 1)
Quarter: 2022Q2

REPORT INFORMATION
  Report Type: Spontaneous
  Country: CA (occurrence: CA)
  Receive Date: 20220403
  Receipt Date: 20220403
  Transmission Date: 20220721
  Serious: Yes (Other)
  Sender: FDA-Public Use
  Company Number: CA-JNJFOC-20220363388

PATIENT
  Age: 46 Year
  Sex: Male
  Weight: 100 kg

DRUGS (3)
  1. REMICADE [Suspect]
     Active Substance: INFLIXIMAB
     Indication: Psoriatic arthropathy
     Route: 042
  2. ERELZI [Concomitant]
     Active Substance: ETANERCEPT-SZZS
  3. METHOTREXATE [Concomitant]
     Active Substance: METHOTREXATE
     Indication: Psoriatic arthropathy

REACTIONS (2)
  - Rash [Unknown]
  - Off label use [Unknown]
